FAERS Safety Report 14360842 (Version 1)
Quarter: 2018Q1

REPORT INFORMATION
  Report Type: Other
  Country: KR (occurrence: KR)
  Receive Date: 20180107
  Receipt Date: 20180107
  Transmission Date: 20180509
  Serious: Yes (Other)
  Sender: FDA-Public Use
  Company Number: KR-DEXPHARM-20171951

PATIENT
  Age: 63 Year
  Sex: Male
  Weight: 75 kg

DRUGS (2)
  1. OS-BETA [Suspect]
     Active Substance: DICLOFENAC SODIUM
     Dosage: ONCE
  2. BERAPROST [Concomitant]
     Active Substance: BERAPROST

REACTIONS (2)
  - Wrong technique in product usage process [Not Recovered/Not Resolved]
  - Injection site necrosis [Not Recovered/Not Resolved]
